FAERS Safety Report 8016550-5 (Version None)
Quarter: 2011Q4

REPORT INFORMATION
  Report Type: 
  Country: None (occurrence: None)
  Receive Date: 20111230
  Receipt Date: 20111228
  Transmission Date: 20120403
  Serious: No
  Sender: FDA-Public Use
  Company Number: US-BAYER-2011-124515

PATIENT
  Age: 82 Year
  Sex: Male
  Weight: 82 kg

DRUGS (6)
  1. ALLOPURINOL [Concomitant]
  2. FINASTERIDE [Concomitant]
  3. DONEPEZIL HCL [Concomitant]
  4. ALEVE (CAPLET) [Suspect]
     Indication: ARTHRITIS
     Dosage: 1 DF, BID
     Dates: start: 20111222, end: 20111223
  5. PECTRZOSINE [Concomitant]
  6. ALEVE (CAPLET) [Suspect]
     Indication: MUSCULOSKELETAL PAIN
     Dosage: 1 DF, TID
     Dates: start: 20111224, end: 20111228

REACTIONS (1)
  - ARTHRALGIA [None]
